FAERS Safety Report 6119158-1 (Version None)
Quarter: 2009Q1

REPORT INFORMATION
  Report Type: 
  Country: None (occurrence: None)
  Receive Date: 20090316
  Receipt Date: 20090305
  Transmission Date: 20090719
  Serious: Yes (Hospitalization)
  Sender: FDA-Public Use
  Company Number: CA-JNJFOC-20090301622

PATIENT
  Sex: Female
  Weight: 84 kg

DRUGS (1)
  1. REMICADE [Suspect]
     Indication: CROHN'S DISEASE
     Route: 042

REACTIONS (3)
  - FATIGUE [None]
  - SUBCUTANEOUS ABSCESS [None]
  - VAGINAL FISTULA [None]
